FAERS Safety Report 4320519-1 (Version None)
Quarter: 2004Q1

REPORT INFORMATION
  Report Type: 
  Country: None (occurrence: None)
  Receive Date: 20040322
  Receipt Date: 20040223
  Transmission Date: 20041129
  Serious: Yes (Other)
  Sender: FDA-Public Use
  Company Number: 200410406DE

PATIENT
  Age: 68 Year
  Sex: Female

DRUGS (2)
  1. LANTUS [Suspect]
     Indication: DIABETES MELLITUS NON-INSULIN-DEPENDENT
     Dosage: DOSE: 30-40
  2. FALITHROM [Concomitant]

REACTIONS (2)
  - BREAST CANCER [None]
  - POSTOPERATIVE INFECTION [None]
